FAERS Safety Report 21388247 (Version 1)
Quarter: 2022Q3

REPORT INFORMATION
  Report Type: Spontaneous
  Country: DE (occurrence: DE)
  Receive Date: 20220928
  Receipt Date: 20220928
  Transmission Date: 20221027
  Serious: Yes (Hospitalization)
  Sender: FDA-Public Use
  Company Number: DE-ADRED-07853-01

PATIENT
  Sex: Male
  Weight: 66 kg

DRUGS (1)
  1. ESCITALOPRAM OXALATE [Suspect]
     Active Substance: ESCITALOPRAM OXALATE
     Indication: Product used for unknown indication
     Dosage: 5 MG, EVERY 7 DAYS, TABLETS
     Route: 048

REACTIONS (6)
  - Product prescribing error [Unknown]
  - Product prescribing error [Unknown]
  - Anxiety [Unknown]
  - Panic reaction [Unknown]
  - Depression [Unknown]
  - Insomnia [Unknown]
